FAERS Safety Report 8457789-4 (Version None)
Quarter: 2012Q2

REPORT INFORMATION
  Report Type: 
  Country: None (occurrence: None)
  Receive Date: 20120323
  Receipt Date: 20110908
  Transmission Date: 20120825
  Serious: Yes (Hospitalization)
  Sender: FDA-Public Use
  Company Number: 163-21880-11081536

PATIENT
  Age: 52 Year
  Sex: Female

DRUGS (2)
  1. REVLIMID [Suspect]
     Indication: MULTIPLE MYELOMA
     Dosage: 15 MG, 1 IN 1 D, PO; 25 MG, FOR 21 DAYS, PO
     Route: 048
     Dates: start: 20090601, end: 20110729
  2. REVLIMID [Suspect]
     Indication: MULTIPLE MYELOMA
     Dosage: 15 MG, 1 IN 1 D, PO; 25 MG, FOR 21 DAYS, PO
     Route: 048
     Dates: start: 20090301, end: 20090601

REACTIONS (3)
  - INTESTINAL OBSTRUCTION [None]
  - PNEUMONIA [None]
  - ACUTE RESPIRATORY FAILURE [None]
